FAERS Safety Report 6504396-6 (Version None)
Quarter: 2009Q4

REPORT INFORMATION
  Report Type: 
  Country: None (occurrence: None)
  Receive Date: 20091217
  Receipt Date: 20091215
  Transmission Date: 20100525
  Serious: Yes (Death, Hospitalization)
  Sender: FDA-Public Use
  Company Number: JP-ABBOTT-09P-087-0614375-00

PATIENT
  Sex: Female
  Weight: 41 kg

DRUGS (1)
  1. HUMIRA [Suspect]
     Indication: RHEUMATOID ARTHRITIS
     Route: 058
     Dates: start: 20090521, end: 20091001

REACTIONS (4)
  - DISSEMINATED INTRAVASCULAR COAGULATION [None]
  - OESOPHAGEAL ULCER [None]
  - PYELONEPHRITIS [None]
  - SEPSIS [None]
